FAERS Safety Report 8258455-0 (Version None)
Quarter: 2012Q2

REPORT INFORMATION
  Report Type: 
  Country: None (occurrence: None)
  Receive Date: 20120404
  Receipt Date: 20120328
  Transmission Date: 20120825
  Serious: Yes (Hospitalization)
  Sender: FDA-Public Use
  Company Number: FR-PFIZER INC-2012078832

PATIENT
  Age: 65 Year
  Sex: Male

DRUGS (3)
  1. DOXAZOSIN MESYLATE [Suspect]
     Indication: POLLAKIURIA
     Dosage: 1 DF, 1X/DAY
     Route: 048
     Dates: start: 20111101, end: 20111110
  2. AMLODIPINE BESYLATE [Concomitant]
     Indication: HYPERTENSION
     Route: 048
  3. TROSPIUM CHLORIDE [Suspect]
     Indication: MICTURITION URGENCY
     Dosage: 20 MG, 2X/DAY
     Route: 048
     Dates: start: 20111101, end: 20111110

REACTIONS (4)
  - ATRIAL FIBRILLATION [None]
  - CARDIAC FAILURE [None]
  - ARRHYTHMIA [None]
  - OEDEMA PERIPHERAL [None]
